FAERS Safety Report 7111060-1 (Version None)
Quarter: 2010Q4

REPORT INFORMATION
  Report Type: 
  Country: None (occurrence: None)
  Receive Date: 20101112
  Receipt Date: 20101027
  Transmission Date: 20110411
  Serious: Yes (Death)
  Sender: FDA-Public Use
  Company Number: AE 2010-348

PATIENT
  Age: 88 Year
  Sex: Female

DRUGS (1)
  1. FAZACLO ODT [Suspect]
     Dosage: 13 MG - 63 MG DAILY PO
     Route: 048
     Dates: start: 20080326

REACTIONS (1)
  - DEATH [None]
